FAERS Safety Report 24758275 (Version 2)
Quarter: 2025Q4

REPORT INFORMATION
  Report Type: Spontaneous
  Country: US (occurrence: None)
  Receive Date: 20241220
  Receipt Date: 20251030
  Transmission Date: 20260117
  Serious: No
  Sender: UCB
  Company Number: US-UCBSA-2024057490

PATIENT

DRUGS (2)
  1. BIMZELX [Suspect]
     Active Substance: BIMEKIZUMAB-BKZX
     Indication: Guttate psoriasis
     Dosage: UNK
  2. ACRIVASTINE [Concomitant]
     Active Substance: ACRIVASTINE
     Indication: Guttate psoriasis

REACTIONS (1)
  - Contusion [Unknown]
